FAERS Safety Report 5503332-9 (Version None)
Quarter: 2007Q4

REPORT INFORMATION
  Report Type: 
  Country: None (occurrence: None)
  Receive Date: 20071031
  Receipt Date: 20071024
  Transmission Date: 20080405
  Serious: Yes (Hospitalization)
  Sender: FDA-Public Use
  Company Number: US-BOEHRINGER INGELHEIM PHARMACEUTICALS, INC.-2007-BP-20897BP

PATIENT
  Sex: Male

DRUGS (17)
  1. SPIRIVA [Suspect]
     Indication: CHRONIC OBSTRUCTIVE PULMONARY DISEASE
     Route: 055
     Dates: start: 20060101, end: 20070901
  2. FLOMAX [Suspect]
     Indication: BENIGN PROSTATIC HYPERPLASIA
     Dates: start: 20070301
  3. FORADIL [Concomitant]
     Indication: CHRONIC OBSTRUCTIVE PULMONARY DISEASE
  4. ALBUTEROL [Concomitant]
     Indication: CHRONIC OBSTRUCTIVE PULMONARY DISEASE
  5. ASTHMANEX [Concomitant]
     Indication: CHRONIC OBSTRUCTIVE PULMONARY DISEASE
  6. XOPENEX [Concomitant]
     Indication: CHRONIC OBSTRUCTIVE PULMONARY DISEASE
  7. PLAVIX [Concomitant]
     Indication: VASCULAR STENT INSERTION
     Dates: start: 20070301
  8. ASPIRIN [Concomitant]
     Indication: VASCULAR STENT INSERTION
     Dates: start: 20070301
  9. TRIAMTERENE AND HYDROCHLOROTHIAZIDE [Concomitant]
     Indication: HYPERTENSION
  10. ZOCOR [Concomitant]
     Indication: PROPHYLAXIS
  11. CALTRATE [Concomitant]
  12. PRESERVISION [Concomitant]
  13. LUTEIN [Concomitant]
  14. SELENIUM [Concomitant]
  15. FOLIC ACID [Concomitant]
  16. ASCORBIC ACID [Concomitant]
  17. VITAMIN D [Concomitant]

REACTIONS (5)
  - BRONCHOSPASM [None]
  - CORONARY ARTERY DISEASE [None]
  - DRUG INTERACTION [None]
  - LIBIDO DECREASED [None]
  - URINARY RETENTION [None]
